FAERS Safety Report 8727018 (Version 2)
Quarter: 2012Q4

REPORT INFORMATION
  Report Type: 
  Country: FR (occurrence: FR)
  Receive Date: 20120816
  Receipt Date: 20120921
  Transmission Date: 20130627
  Serious: Yes (Hospitalization)
  Sender: FDA-Public Use
  Company Number: FR-GLAXOSMITHKLINE-B0820585A

PATIENT
  Age: 82 Year
  Sex: Female
  Weight: 55 kg

DRUGS (16)
  1. DEROXAT [Suspect]
     Indication: PRODUCT USED FOR UNKNOWN INDICATION
     Dosage: 20MG Per day
     Route: 048
  2. TIAPRIDAL [Suspect]
     Indication: VASCULAR DEMENTIA
     Route: 048
     Dates: start: 20120110
  3. CARDENSIEL [Suspect]
     Indication: PRODUCT USED FOR UNKNOWN INDICATION
     Dosage: 1.25MG Per day
     Route: 048
  4. LASILIX [Suspect]
     Indication: PRODUCT USED FOR UNKNOWN INDICATION
     Dosage: 40MG Three times per day
     Route: 048
  5. TRIATEC [Suspect]
     Indication: PRODUCT USED FOR UNKNOWN INDICATION
     Dosage: 10MG Twice per day
     Route: 048
  6. TERCIAN [Concomitant]
     Indication: VASCULAR DEMENTIA
     Route: 048
     Dates: start: 20120105, end: 20120110
  7. CORDARONE [Concomitant]
     Dosage: 200MG In the morning
     Route: 048
  8. COUMADINE [Concomitant]
     Dosage: 1MG Per day
     Route: 048
  9. TAHOR [Concomitant]
     Dosage: 20MG Per day
     Route: 048
  10. EFFERALGAN [Concomitant]
     Route: 048
  11. BRICANYL [Concomitant]
     Dosage: 1UNIT Three times per day
     Route: 055
     Dates: start: 20120327
  12. ATROVENT [Concomitant]
     Dosage: 1UNIT Three times per day
     Route: 055
     Dates: start: 20120327
  13. CALCIDOSE VITAMIN D [Concomitant]
     Dosage: 2UNIT In the morning
     Route: 048
  14. KALEORID LP [Concomitant]
     Dosage: 1200MG Per day
     Route: 048
  15. LANTUS [Concomitant]
     Dosage: 10IU Per day
     Route: 058
  16. PARIET [Concomitant]
     Dosage: 20MG Per day
     Route: 065

REACTIONS (7)
  - Fall [Recovering/Resolving]
  - Face injury [Unknown]
  - Haematoma [Unknown]
  - Malaise [Unknown]
  - General physical health deterioration [Unknown]
  - Balance disorder [Unknown]
  - Abasia [Unknown]
